FAERS Safety Report 8763434 (Version 3)
Quarter: 2012Q4

REPORT INFORMATION
  Report Type: Report from Study
  Country: US (occurrence: US)
  Receive Date: 20120831
  Receipt Date: 20121001
  Transmission Date: 20130627
  Serious: Yes (Hospitalization)
  Sender: FDA-Public Use
  Company Number: US-009507513-1208USA011083

PATIENT
  Age: 55 Year
  Sex: Female

DRUGS (22)
  1. TEMODAR [Suspect]
     Indication: OVARIAN CANCER
     Dosage: 200 mg/m2, days 1-5 of each 28 D cycle
     Route: 042
     Dates: start: 20120119
  2. TEMODAR [Suspect]
     Dosage: 150 mg/m2, days 1-5 of each 28 D cycle
     Route: 042
     Dates: start: 20111222, end: 20111226
  3. VELIPARIB [Suspect]
     Indication: OVARIAN CANCER
     Dosage: 40 mg, bid, days 1-7 of each 28 D cycle
     Route: 048
     Dates: start: 20111222
  4. DOXORUBICIN HYDROCHLORIDE [Suspect]
     Indication: OVARIAN CANCER
     Dosage: 50 mg/m2, day 1 of each 28 day cycle
     Route: 042
     Dates: start: 20100812, end: 20100812
  5. DOXORUBICIN HYDROCHLORIDE [Suspect]
     Dosage: 40 mg/m2, day 1 of each 28 day cycle
     Route: 042
     Dates: start: 20100909, end: 20100909
  6. DOXORUBICIN HYDROCHLORIDE [Suspect]
     Dosage: 30 mg/m2, day 1 of each 28 day cycle
     Route: 042
     Dates: start: 20101014, end: 20111117
  7. MAGNESIUM (UNSPECIFIED) [Concomitant]
     Indication: HYPOMAGNESAEMIA
     Dosage: 400 mg, bid
     Dates: start: 20100812
  8. LEXAPRO [Concomitant]
     Indication: ANXIETY
     Dosage: 10 mg, qd
     Dates: start: 20050805
  9. ATORVASTATIN [Concomitant]
     Indication: HYPERLIPIDAEMIA
     Dosage: 10 mg, qd
     Dates: start: 20050218
  10. IBUPROFEN SODIUM [Concomitant]
     Indication: PAIN PROPHYLAXIS
     Dosage: 800 mg, As required
     Dates: start: 20050527
  11. LEVOTHYROXINE SODIUM [Concomitant]
     Indication: HYPOTHYROIDISM
     Dosage: 75 Microgram, qd
     Dates: start: 20070427
  12. VITAMINS (UNSPECIFIED) [Concomitant]
     Indication: ROUTINE HEALTH MAINTENANCE
     Dosage: 1 DF, qd
     Dates: start: 20070427
  13. LEKOVIT CA [Concomitant]
     Indication: ROUTINE HEALTH MAINTENANCE
     Dosage: 600 mg, qd
     Dates: start: 20070427
  14. MAGNESIUM OXIDE [Concomitant]
     Indication: ROUTINE HEALTH MAINTENANCE
     Dosage: 400 mg, bid
     Dates: start: 20070813
  15. CYANOCOBALAMIN [Concomitant]
     Indication: ROUTINE HEALTH MAINTENANCE
     Dosage: UNK
     Dates: start: 20081002
  16. ATIVAN [Concomitant]
     Indication: INSOMNIA
     Dosage: 0.5 mg, prn
     Dates: start: 20100902
  17. NYSTATIN [Concomitant]
     Indication: FUNGAL INFECTION
     Dosage: prn
     Dates: start: 20101111
  18. ATARAX (HYDROXYZINE HYDROCHLORIDE) [Concomitant]
     Indication: RASH
     Dosage: 25 mg, prn
     Dates: start: 20110310
  19. ANZEMET [Concomitant]
     Indication: PREMEDICATION
     Dosage: 100 mg, qm
     Dates: start: 20110812
  20. MIRALAX [Concomitant]
     Indication: CONSTIPATION
     Dosage: 17 mg, qd
     Dates: start: 20120606
  21. BENTYL [Concomitant]
     Indication: ABDOMINAL PAIN
     Dosage: 20 mg, qd
     Dates: start: 20120706
  22. HEXADROL INJECTION [Concomitant]
     Dosage: 20 mg, qm
     Dates: start: 20100812

REACTIONS (1)
  - Abdominal pain [Recovered/Resolved]
